FAERS Safety Report 7477986-4 (Version None)
Quarter: 2011Q2

REPORT INFORMATION
  Report Type: 
  Country: None (occurrence: None)
  Receive Date: 20110511
  Receipt Date: 20110511
  Transmission Date: 20111010
  Serious: Yes (Other)
  Sender: FDA-Public Use
  Company Number: None

PATIENT
  Age: 3 Year
  Sex: Male
  Weight: 23.587 kg

DRUGS (1)
  1. VAZOBID 1/2 TSP EVERY 12 HRS. WRASER [Suspect]
     Dosage: 1/2 TSP EVERY 12 HRS PO
     Route: 048

REACTIONS (2)
  - GRAND MAL CONVULSION [None]
  - MYOCLONIC EPILEPSY [None]
